FAERS Safety Report 19457726 (Version 6)
Quarter: 2021Q3

REPORT INFORMATION
  Report Type: Spontaneous
  Country: US (occurrence: US)
  Receive Date: 20210624
  Receipt Date: 20210930
  Transmission Date: 20211014
  Serious: No
  Sender: FDA-Public Use
  Company Number: US-DSJP-DSU-2021-119278

PATIENT
  Age: 30 Year
  Sex: Male

DRUGS (3)
  1. TURALIO [Suspect]
     Active Substance: PEXIDARTINIB HYDROCHLORIDE
     Dosage: ONE CAPSULE TWICE A DAY.
     Route: 048
  2. TURALIO [Suspect]
     Active Substance: PEXIDARTINIB HYDROCHLORIDE
     Dosage: 200 MG 2 PO EVERY MORNING AND 2 PO EVERY EVENING
     Route: 048
  3. TURALIO [Suspect]
     Active Substance: PEXIDARTINIB HYDROCHLORIDE
     Indication: GIANT CELL TUMOUR OF TENDON SHEATH
     Dosage: 400 MG, BID
     Route: 048
     Dates: start: 20210619

REACTIONS (9)
  - Decreased appetite [Not Recovered/Not Resolved]
  - Product dose omission issue [Recovered/Resolved]
  - Fall [Recovered/Resolved]
  - Back injury [Recovered/Resolved]
  - Off label use [Unknown]
  - Neuropathy peripheral [Recovered/Resolved]
  - Hair colour changes [Not Recovered/Not Resolved]
  - Nervous system disorder [Recovered/Resolved]
  - Dry mouth [Not Recovered/Not Resolved]

NARRATIVE: CASE EVENT DATE: 2021
